FAERS Safety Report 7226417-8 (Version None)
Quarter: 2011Q1

REPORT INFORMATION
  Report Type: 
  Country: None (occurrence: None)
  Receive Date: 20110105
  Receipt Date: 20101220
  Transmission Date: 20110831
  Serious: Yes (Life-Threatening, Hospitalization, Disabling)
  Sender: FDA-Public Use
  Company Number: 2006002128

PATIENT
  Age: 73 Year
  Sex: Male
  Weight: 86.7 kg

DRUGS (9)
  1. MEGACE [Concomitant]
  2. DUONEB (SALBUTAMOL) [Concomitant]
  3. PROTONIX [Concomitant]
  4. PERCOCET [Concomitant]
  5. PLACEBO (PLACEBO) (INJECTION FOR INFUSION) [Suspect]
     Indication: NON-SMALL CELL LUNG CANCER
     Dosage: (1335 MG, Q3W), INTRAVENOUS
     Route: 042
     Dates: start: 20060628, end: 20060920
  6. ERLOTINIB (TABLET) [Suspect]
     Indication: NON-SMALL CELL LUNG CANCER
     Dosage: 100 MG (150 MG, QD), ORAL
     Route: 048
     Dates: start: 20060628, end: 20061010
  7. PLACEBO (PLACEBO) (INJECTION FOR INFUSION) [Suspect]
  8. PLACEBO (PLACEBO) (INJECTION FOR INFUSION) [Suspect]
  9. CARISOPRODOL [Concomitant]

REACTIONS (16)
  - RIB FRACTURE [None]
  - MOTOR DYSFUNCTION [None]
  - DIASTOLIC DYSFUNCTION [None]
  - BODY TEMPERATURE DECREASED [None]
  - CLOSTRIDIUM DIFFICILE COLITIS [None]
  - OSTEOARTHRITIS [None]
  - TRICUSPID VALVE INCOMPETENCE [None]
  - ASTHENIA [None]
  - HEART RATE INCREASED [None]
  - HAEMOGLOBIN DECREASED [None]
  - CEREBRAL ATROPHY [None]
  - OSTEOPOROSIS [None]
  - TOXIC ENCEPHALOPATHY [None]
  - EMPHYSEMA [None]
  - LUNG NEOPLASM [None]
  - TACHYCARDIA PAROXYSMAL [None]
